FAERS Safety Report 7524968-X (Version None)
Quarter: 2011Q2

REPORT INFORMATION
  Report Type: 
  Country: None (occurrence: None)
  Receive Date: 20110606
  Receipt Date: 20110524
  Transmission Date: 20111010
  Serious: Yes (Other)
  Sender: FDA-Public Use
  Company Number: DE-ELI_LILLY_AND_COMPANY-DE201105006782

PATIENT
  Age: 56 Year
  Sex: Female

DRUGS (1)
  1. ZYPREXA [Suspect]
     Indication: ANXIETY
     Dosage: 2.5 MG, UNK
     Route: 048
     Dates: start: 20070101, end: 20110414

REACTIONS (8)
  - PALPITATIONS [None]
  - GASTROINTESTINAL DISORDER [None]
  - ALOPECIA [None]
  - ARRHYTHMIA [None]
  - PAIN IN EXTREMITY [None]
  - INSOMNIA [None]
  - OFF LABEL USE [None]
  - LIMB DISCOMFORT [None]
